FAERS Safety Report 7112699-X (Version None)
Quarter: 2010Q4

REPORT INFORMATION
  Report Type: 
  Country: None (occurrence: None)
  Receive Date: 20101119
  Receipt Date: 20101105
  Transmission Date: 20110411
  Serious: Yes (Life-Threatening, Hospitalization)
  Sender: FDA-Public Use
  Company Number: PHHY2010JP56152

PATIENT
  Sex: Male
  Weight: 65 kg

DRUGS (13)
  1. DIOVAN HCT [Suspect]
     Indication: HYPERTENSION
     Dosage: 1 DF, QD (IN THE MORNING )
     Route: 048
     Dates: start: 20100714, end: 20100817
  2. NU-LOTAN [Suspect]
     Indication: HYPERTENSION
     Dosage: UNK
     Route: 048
     Dates: start: 20100818
  3. GASTER D [Suspect]
     Indication: GASTRITIS
     Dosage: 1 DF, UNK
     Route: 048
     Dates: start: 20091119
  4. ROCEPHIN [Concomitant]
     Dosage: CONTINUOUSLY FROM THE MORNING TO THE EVENING
  5. MUCOSTA [Concomitant]
     Indication: GASTRITIS
     Dosage: 2 DF
     Route: 048
     Dates: start: 20091119
  6. SOLU-MEDROL [Concomitant]
     Dosage: 500 MG
  7. PREDNISOLONE [Concomitant]
     Dosage: 60 MG
  8. PREDNISOLONE [Concomitant]
     Dosage: 50 MG
     Dates: start: 20100903
  9. PREDNISOLONE [Concomitant]
     Dosage: 40 MG
     Dates: start: 20100910
  10. PREDNISOLONE [Concomitant]
     Dosage: 35 MG
     Dates: start: 20100917
  11. PREDNISOLONE [Concomitant]
     Dosage: 30 MG
     Dates: start: 20100924
  12. PREDNISOLONE [Concomitant]
     Dosage: 25 MG
     Dates: start: 20101001
  13. PREDNISOLONE [Concomitant]
     Dosage: 20 MG
     Dates: start: 20101008

REACTIONS (5)
  - CELL MARKER INCREASED [None]
  - DYSPNOEA [None]
  - EMPHYSEMA [None]
  - INTERSTITIAL LUNG DISEASE [None]
  - SURFACTANT PROTEIN INCREASED [None]
